FAERS Safety Report 13109613 (Version 1)
Quarter: 2017Q1

REPORT INFORMATION
  Report Type: Spontaneous
  Country: US (occurrence: US)
  Receive Date: 20170112
  Receipt Date: 20170112
  Transmission Date: 20170428
  Serious: Yes (Life-Threatening, Other)
  Sender: FDA-Public Use
  Company Number: None

PATIENT
  Age: 69 Year
  Sex: Male
  Weight: 63.9 kg

DRUGS (1)
  1. PACLITAXEL. [Suspect]
     Active Substance: PACLITAXEL
     Indication: NON-SMALL CELL LUNG CANCER STAGE II
     Route: 042
     Dates: start: 20160803, end: 20160831

REACTIONS (4)
  - Respiratory distress [None]
  - Hypertension [None]
  - Tachycardia [None]
  - Respiratory depression [None]

NARRATIVE: CASE EVENT DATE: 20160831
